FAERS Safety Report 13441367 (Version 1)
Quarter: 2017Q2

REPORT INFORMATION
  Report Type: Spontaneous
  Country: US (occurrence: US)
  Receive Date: 20170413
  Receipt Date: 20170413
  Transmission Date: 20170830
  Serious: Yes (Life-Threatening, Hospitalization, Disabling, Other)
  Sender: FDA-Public Use
  Company Number: US-ALVOGEN-2017-ALVOGEN-091895

PATIENT
  Age: 35 Year
  Sex: Female

DRUGS (6)
  1. OXYCODONE,APAP [Suspect]
     Active Substance: ACETAMINOPHEN\OXYCODONE HYDROCHLORIDE
     Indication: OVERDOSE
  2. OXYCODONE,APAP [Suspect]
     Active Substance: ACETAMINOPHEN\OXYCODONE HYDROCHLORIDE
     Indication: PAIN
  3. OXYCODONE,APAP [Suspect]
     Active Substance: ACETAMINOPHEN\OXYCODONE HYDROCHLORIDE
     Indication: SUBSTANCE USE
  4. VENLAFAXINE [Concomitant]
     Active Substance: VENLAFAXINE HYDROCHLORIDE
     Indication: BIPOLAR DISORDER
  5. ALPRAZOLAM. [Concomitant]
     Active Substance: ALPRAZOLAM
     Indication: BIPOLAR DISORDER
  6. LAMOTRIGINE. [Concomitant]
     Active Substance: LAMOTRIGINE
     Indication: BIPOLAR DISORDER

REACTIONS (10)
  - Basal ganglia infarction [Recovering/Resolving]
  - Overdose [Not Recovered/Not Resolved]
  - Hypoxia [Recovering/Resolving]
  - Spinal cord infarction [Recovering/Resolving]
  - Paraplegia [Not Recovered/Not Resolved]
  - Deafness neurosensory [Recovering/Resolving]
  - Respiratory failure [Recovering/Resolving]
  - Substance use [Not Recovered/Not Resolved]
  - Deafness [Recovering/Resolving]
  - Tinnitus [Recovering/Resolving]
